FAERS Safety Report 7085479-1 (Version None)
Quarter: 2010Q4

REPORT INFORMATION
  Report Type: 
  Country: None (occurrence: None)
  Receive Date: 20101105
  Receipt Date: 20101101
  Transmission Date: 20110411
  Serious: Yes (Death, Other)
  Sender: FDA-Public Use
  Company Number: US-PFIZER INC-2010138934

PATIENT
  Sex: Male

DRUGS (3)
  1. VFEND [Suspect]
     Indication: CANDIDIASIS
     Dosage: UNK
     Route: 042
  2. MICAFUNGIN [Concomitant]
     Dosage: UNK
  3. AMPHOTERICIN B [Concomitant]
     Dosage: UNK

REACTIONS (3)
  - DRUG LEVEL DECREASED [None]
  - FUNGAEMIA [None]
  - FUNGAL INFECTION [None]
